FAERS Safety Report 8846995 (Version 1)
Quarter: 2012Q4

REPORT INFORMATION
  Report Type: 
  Country: FR (occurrence: FR)
  Receive Date: 20121018
  Receipt Date: 20121018
  Transmission Date: 20130627
  Serious: Yes (Hospitalization)
  Sender: FDA-Public Use
  Company Number: FR-SANOFI-AVENTIS-2012SA075074

PATIENT
  Age: 66 Year
  Sex: Female

DRUGS (7)
  1. RIFADINE [Suspect]
     Indication: MONOARTHRITIS
     Route: 065
     Dates: start: 20120805, end: 20120905
  2. TAVANIC [Suspect]
     Indication: MONOARTHRITIS
     Route: 048
     Dates: start: 20120805, end: 20120905
  3. FEMARA [Concomitant]
     Route: 048
  4. IXPRIM [Concomitant]
     Indication: PAIN
     Route: 048
  5. ACTISKENAN [Concomitant]
     Indication: PAIN
     Route: 048
  6. LODOZ [Concomitant]
     Route: 048
  7. COLCHICINE [Concomitant]
     Route: 048
     Dates: end: 20120812

REACTIONS (3)
  - Prothrombin time ratio decreased [Recovered/Resolved]
  - Renal failure acute [Recovered/Resolved]
  - General physical health deterioration [Recovered/Resolved]
